FAERS Safety Report 11199259 (Version 2)
Quarter: 2015Q2

REPORT INFORMATION
  Report Type: Spontaneous
  Country: US (occurrence: US)
  Receive Date: 20150618
  Receipt Date: 20150623
  Transmission Date: 20150821
  Serious: No
  Sender: FDA-Public Use
  Company Number: US-PFIZER INC-2015199742

PATIENT
  Sex: Male

DRUGS (2)
  1. ADVIL [Suspect]
     Active Substance: IBUPROFEN
     Indication: PAIN
     Dosage: 400 MG, UNK (TWO CAPSULE OF 200MG)
  2. HYDROCO ACETAMIN [Suspect]
     Active Substance: ACETAMINOPHEN\HYDROCODONE
     Indication: PAIN
     Dosage: 325 MG, UNK

REACTIONS (2)
  - Intentional product misuse [Unknown]
  - Malaise [Unknown]
